FAERS Safety Report 14605004 (Version 1)
Quarter: 2018Q1

REPORT INFORMATION
  Report Type: Spontaneous
  Country: US (occurrence: US)
  Receive Date: 20180306
  Receipt Date: 20180306
  Transmission Date: 20180509
  Serious: Yes (Other)
  Sender: FDA-Public Use
  Company Number: US-AKRON, INC.-2043074

PATIENT
  Sex: Female

DRUGS (1)
  1. METHYLENE BLUE INJECTION; VIAL 10 ML [Suspect]
     Active Substance: METHYLENE BLUE
     Route: 042

REACTIONS (4)
  - Skin discolouration [Unknown]
  - Injection site discolouration [None]
  - Necrosis [Unknown]
  - Injection site necrosis [None]
